FAERS Safety Report 8481233-4 (Version None)
Quarter: 2012Q2

REPORT INFORMATION
  Report Type: 
  Country: None (occurrence: None)
  Receive Date: 20120622
  Receipt Date: 20120403
  Transmission Date: 20120825
  Serious: Yes (Hospitalization, Other)
  Sender: FDA-Public Use
  Company Number: FI-024430

PATIENT
  Age: 72 Year
  Sex: Male

DRUGS (6)
  1. SIMVASTATIN [Concomitant]
  2. AMILORIDE/HYDROCHLOROTHIAZIDE (AMILORIDE) [Concomitant]
  3. CHLORAMBUCIL (CHLORRAMBUCIL) (20 MILLIGRAM, UNKNOWN) [Suspect]
     Indication: CHRONIC LYMPHOCYTIC LEUKAEMIA
     Dosage: FORM UNKNOWN (20 MILLIGRAM, 1 IN 1 DAYS), ORAL
     Route: 048
     Dates: start: 20110131
  4. METOPROLOL TARTRATE [Concomitant]
  5. RITUXIMAB (RITUXIMAB) (1050 MILLIGRAM, UNKNOWN), B6093 [Suspect]
     Dosage: FORM UNKNOWN (1050 MILLIGRAM, 1 IN  1 MONTHS), INTRAVENOUS (NOT OTHERWISE SPECIFIED)
     Route: 042
     Dates: start: 20110131
  6. ASPIRIN [Concomitant]

REACTIONS (5)
  - HAEMORRHAGE [None]
  - SINUSITIS [None]
  - FACIAL PAIN [None]
  - PYREXIA [None]
  - ACUTE SINUSITIS [None]
